FAERS Safety Report 6923671-4 (Version None)
Quarter: 2010Q3

REPORT INFORMATION
  Report Type: 
  Country: None (occurrence: None)
  Receive Date: 20100813
  Receipt Date: 20100804
  Transmission Date: 20110219
  Serious: Yes (Hospitalization)
  Sender: FDA-Public Use
  Company Number: B0665706A

PATIENT
  Sex: Male
  Weight: 78.6 kg

DRUGS (2)
  1. PAZOPANIB [Suspect]
     Indication: BREAST NEOPLASM
     Dosage: 400MG PER DAY
     Route: 048
     Dates: start: 20100622
  2. DOCETAXEL [Suspect]
     Indication: BREAST NEOPLASM
     Dosage: 60MGM2 EVERY 3 WEEKS
     Route: 042
     Dates: start: 20100629, end: 20100629

REACTIONS (1)
  - FEBRILE NEUTROPENIA [None]
